FAERS Safety Report 6530915-X (Version None)
Quarter: 2010Q1

REPORT INFORMATION
  Report Type: 
  Country: None (occurrence: None)
  Receive Date: 20100108
  Receipt Date: 20090525
  Transmission Date: 20100710
  Serious: No
  Sender: FDA-Public Use
  Company Number: A0787775A

PATIENT
  Sex: Male

DRUGS (1)
  1. LOVAZA [Suspect]
     Indication: DRUG USE FOR UNKNOWN INDICATION
     Route: 065

REACTIONS (2)
  - HYPERHIDROSIS [None]
  - SKIN ODOUR ABNORMAL [None]
